FAERS Safety Report 5059637-1 (Version None)
Quarter: 2006Q3

REPORT INFORMATION
  Report Type: 
  Country: None (occurrence: None)
  Receive Date: 20060724
  Receipt Date: 20060412
  Transmission Date: 20061208
  Serious: No
  Sender: FDA-Public Use
  Company Number: 136-288879

PATIENT
  Age: 70 Year
  Sex: Female
  Weight: 114.5 kg

DRUGS (5)
  1. HYCAMTIN [Suspect]
     Dosage: 7MGM2 CYCLIC
     Route: 042
     Dates: start: 20060303
  2. TAXOTERE [Concomitant]
  3. HUMULIN 70/30 [Concomitant]
  4. AMBIEN [Concomitant]
  5. VASOTEC [Concomitant]

REACTIONS (2)
  - CARBOHYDRATE ANTIGEN 125 INCREASED [None]
  - DRUG INEFFECTIVE [None]
